FAERS Safety Report 7295228-X (Version None)
Quarter: 2011Q1

REPORT INFORMATION
  Report Type: 
  Country: None (occurrence: None)
  Receive Date: 20110216
  Receipt Date: 20101228
  Transmission Date: 20110831
  Serious: No
  Sender: FDA-Public Use
  Company Number: A0901692A

PATIENT
  Age: 67 Year
  Sex: Male

DRUGS (1)
  1. VOTRIENT [Suspect]
     Dosage: 200MG PER DAY
     Route: 048
     Dates: start: 20101011

REACTIONS (2)
  - DIZZINESS [None]
  - DRUG INEFFECTIVE [None]
